FAERS Safety Report 4300094-8 (Version None)
Quarter: 2004Q1

REPORT INFORMATION
  Report Type: 
  Country: None (occurrence: None)
  Receive Date: 20040219
  Receipt Date: 20040219
  Transmission Date: 20041129
  Serious: Yes (Hospitalization)
  Sender: FDA-Public Use
  Company Number: None

PATIENT
  Age: 75 Year
  Sex: Male

DRUGS (6)
  1. COUMADIN [Suspect]
     Indication: ATRIAL FIBRILLATION
     Dosage: 1 PO QD, 1 1/2 SAT.SUN
  2. AMLODIPINE [Concomitant]
  3. NITROGLYCERIN [Concomitant]
  4. DIGOXIN [Concomitant]
  5. HYDROCHLOROTHIAZIDE [Concomitant]
  6. METOPROLOL [Concomitant]

REACTIONS (5)
  - CELLULITIS [None]
  - INCISION SITE HAEMORRHAGE [None]
  - PAIN [None]
  - STAPHYLOCOCCAL INFECTION [None]
  - SWELLING [None]
